FAERS Safety Report 8095090-1 (Version None)
Quarter: 2011Q4

REPORT INFORMATION
  Report Type: 
  Country: None (occurrence: None)
  Receive Date: 20111222
  Receipt Date: 20111123
  Transmission Date: 20120403
  Serious: Yes (Hospitalization)
  Sender: FDA-Public Use
  Company Number: UTC-011870

PATIENT
  Age: 74 Year
  Sex: Female
  Weight: 60.45 kg

DRUGS (7)
  1. DIURETICS (DIURETICS) [Concomitant]
  2. REVATIO [Concomitant]
  3. OXYGEN (OXYGEN) [Concomitant]
  4. TYVASO [Suspect]
     Indication: PULMONARY ARTERIAL HYPERTENSION
     Dosage: (54 MCG),INHALATION
     Route: 055
     Dates: start: 20091105
  5. LETAIRIS [Suspect]
  6. COUMADIN [Concomitant]
  7. DIGOXIN [Concomitant]

REACTIONS (3)
  - DEHYDRATION [None]
  - ASTHENIA [None]
  - LIVER FUNCTION TEST ABNORMAL [None]
